FAERS Safety Report 4504523-6 (Version None)
Quarter: 2004Q4

REPORT INFORMATION
  Report Type: 
  Country: None (occurrence: None)
  Receive Date: 20041116
  Receipt Date: 20041110
  Transmission Date: 20050328
  Serious: Yes (Other)
  Sender: FDA-Public Use
  Company Number: 140669USA

PATIENT
  Age: 63 Year
  Sex: Female

DRUGS (4)
  1. PIMOZIDE [Suspect]
     Indication: HALLUCINATION, AUDITORY
     Dosage: MILLIGRAM, ORAL
     Route: 048
     Dates: start: 19790101, end: 20000101
  2. PIMOZIDE [Suspect]
     Indication: SCHIZOPHRENIA
     Dosage: MILLIGRAM, ORAL
     Route: 048
     Dates: start: 19790101, end: 20000101
  3. PIMOZIDE [Suspect]
     Indication: HALLUCINATION, AUDITORY
     Dosage: MILLIGRAM, ORAL
     Route: 048
     Dates: start: 20000101
  4. PIMOZIDE [Suspect]
     Indication: SCHIZOPHRENIA
     Dosage: MILLIGRAM, ORAL
     Route: 048
     Dates: start: 20000101

REACTIONS (4)
  - DIZZINESS [None]
  - EYE PAIN [None]
  - HEADACHE [None]
  - VISUAL DISTURBANCE [None]
